FAERS Safety Report 7323429-0 (Version None)
Quarter: 2011Q1

REPORT INFORMATION
  Report Type: 
  Country: None (occurrence: None)
  Receive Date: 20110203
  Receipt Date: 20110124
  Transmission Date: 20110831
  Serious: Yes (Death, Hospitalization)
  Sender: FDA-Public Use
  Company Number: WSDF_00735

PATIENT
  Sex: Male
  Weight: 158.3054 kg

DRUGS (4)
  1. WINRHO SDF LIQUID [Suspect]
     Indication: IDIOPATHIC THROMBOCYTOPENIC PURPURA
     Dosage: 44.13 UG/KG TOTAL, INTRAVENOUS (NOT OTHERWISE SPECIFIED)
     Route: 042
     Dates: start: 20080307, end: 20080307
  2. IMMUNE GLOBULIN NOS [Concomitant]
  3. PREDNISONE [Concomitant]
  4. PREVACID [Concomitant]

REACTIONS (20)
  - HAEMOGLOBIN DECREASED [None]
  - HAEMATOCHEZIA [None]
  - JAUNDICE [None]
  - ACUTE HEPATIC FAILURE [None]
  - RETICULOCYTE COUNT INCREASED [None]
  - EXTRAVASCULAR HAEMOLYSIS [None]
  - CLOSTRIDIUM DIFFICILE COLITIS [None]
  - CLOSTRIDIUM BACTERAEMIA [None]
  - HEPATOSPLENOMEGALY [None]
  - VOMITING [None]
  - HAPTOGLOBIN DECREASED [None]
  - DISSEMINATED INTRAVASCULAR COAGULATION [None]
  - ASPARTATE AMINOTRANSFERASE INCREASED [None]
  - BLOOD BILIRUBIN INCREASED [None]
  - HEPATIC CIRRHOSIS [None]
  - HEPATIC STEATOSIS [None]
  - NAUSEA [None]
  - BLOOD LACTATE DEHYDROGENASE INCREASED [None]
  - RENAL FAILURE [None]
  - MALAISE [None]
